FAERS Safety Report 24529197 (Version 5)
Quarter: 2024Q4

REPORT INFORMATION
  Report Type: Report from Study
  Country: JP (occurrence: JP)
  Receive Date: 20241021
  Receipt Date: 20241227
  Transmission Date: 20250115
  Serious: Yes (Hospitalization, Other)
  Sender: ALEXION PHARMACEUTICALS
  Company Number: JP-AstraZeneca-CH-00726821A

PATIENT
  Age: 85 Year

DRUGS (16)
  1. DANICOPAN [Suspect]
     Active Substance: DANICOPAN
     Indication: Paroxysmal nocturnal haemoglobinuria
     Dosage: 150 MILLIGRAM, TID
     Route: 048
  2. DANICOPAN [Suspect]
     Active Substance: DANICOPAN
     Dosage: 150 MILLIGRAM, TID
  3. DANICOPAN [Suspect]
     Active Substance: DANICOPAN
     Dosage: 150 MILLIGRAM, TID
     Route: 048
  4. DANICOPAN [Suspect]
     Active Substance: DANICOPAN
     Dosage: 150 MILLIGRAM, TID
  5. DANICOPAN [Suspect]
     Active Substance: DANICOPAN
     Dosage: 150 MILLIGRAM, TID
     Route: 048
  6. DANICOPAN [Suspect]
     Active Substance: DANICOPAN
     Dosage: 150 MILLIGRAM, TID
  7. DANICOPAN [Suspect]
     Active Substance: DANICOPAN
     Dosage: 150 MILLIGRAM, TID
     Route: 048
  8. DANICOPAN [Suspect]
     Active Substance: DANICOPAN
     Dosage: 150 MILLIGRAM, TID
  9. ULTOMIRIS [Suspect]
     Active Substance: RAVULIZUMAB-CWVZ
     Indication: Paroxysmal nocturnal haemoglobinuria
     Dosage: 2400 MILLIGRAM
     Route: 042
  10. ULTOMIRIS [Suspect]
     Active Substance: RAVULIZUMAB-CWVZ
     Dosage: 2400 MILLIGRAM
  11. ULTOMIRIS [Suspect]
     Active Substance: RAVULIZUMAB-CWVZ
     Dosage: 2400 MILLIGRAM
     Route: 042
  12. ULTOMIRIS [Suspect]
     Active Substance: RAVULIZUMAB-CWVZ
     Dosage: 2400 MILLIGRAM
  13. ULTOMIRIS [Suspect]
     Active Substance: RAVULIZUMAB-CWVZ
     Dosage: 3000 MILLIGRAM, Q8W
     Route: 042
  14. ULTOMIRIS [Suspect]
     Active Substance: RAVULIZUMAB-CWVZ
     Dosage: 3000 MILLIGRAM, Q8W
  15. ULTOMIRIS [Suspect]
     Active Substance: RAVULIZUMAB-CWVZ
     Dosage: 3000 MILLIGRAM, Q8W
     Route: 042
  16. ULTOMIRIS [Suspect]
     Active Substance: RAVULIZUMAB-CWVZ
     Dosage: 3000 MILLIGRAM, Q8W

REACTIONS (3)
  - Infection [Not Recovered/Not Resolved]
  - Pneumonia [Unknown]
  - Haemolysis [Unknown]
